FAERS Safety Report 5657240-3 (Version None)
Quarter: 2008Q1

REPORT INFORMATION
  Report Type: 
  Country: None (occurrence: None)
  Receive Date: 20080310
  Receipt Date: 20080128
  Transmission Date: 20080703
  Serious: Yes (Death)
  Sender: FDA-Public Use
  Company Number: US-TYCO HEALTHCARE/MALLINCKRODT-T200800233

PATIENT

DRUGS (6)
  1. RESTORIL [Suspect]
     Route: 048
  2. ACETAMINOPHEN AND HYDROCODONE BITARTRATE [Suspect]
     Route: 048
  3. FLUOXETINE [Suspect]
     Route: 048
  4. DIAZEPAM [Suspect]
     Route: 048
  5. BARBENYL [Suspect]
     Route: 048
  6. BENZODIAZEPINE DERIVATIVES [Suspect]
     Route: 048

REACTIONS (1)
  - DRUG ABUSE [None]
